FAERS Safety Report 19454207 (Version 1)
Quarter: 2021Q2

REPORT INFORMATION
  Report Type: Spontaneous
  Country: TR (occurrence: TR)
  Receive Date: 20210623
  Receipt Date: 20210623
  Transmission Date: 20210717
  Serious: Yes (Death, Life-Threatening, Hospitalization, Other)
  Sender: FDA-Public Use
  Company Number: TR-SLATE RUN PHARMACEUTICALS-21TR000538

PATIENT

DRUGS (8)
  1. AZITHROMYCIN USP [Suspect]
     Active Substance: AZITHROMYCIN
     Dosage: 2 X 500 MG LOADING DOSE
  2. HYDROXYCHLOROQUINE [Concomitant]
     Active Substance: HYDROXYCHLOROQUINE
     Indication: COVID-19
     Dosage: 200 MG TABLETS, 2 ? 1
  3. HYDROXYCHLOROQUINE [Concomitant]
     Active Substance: HYDROXYCHLOROQUINE
     Dosage: 2 ? 200 MG MAINTENANCE DOSE
  4. HYDROXYCHLOROQUINE [Concomitant]
     Active Substance: HYDROXYCHLOROQUINE
     Dosage: 2 X 400 MG LOADING DOSE
  5. METHYLPREDNISOLONE. [Concomitant]
     Active Substance: METHYLPREDNISOLONE
     Indication: MATERNAL THERAPY TO ENHANCE FOETAL LUNG MATURITY
     Dosage: 40 MILLIGRAM
  6. ENOXAPARIN [Concomitant]
     Active Substance: ENOXAPARIN
     Dosage: 0.4 IU/ML
  7. AZITHROMYCIN USP [Suspect]
     Active Substance: AZITHROMYCIN
     Indication: COVID-19
     Dosage: 2 X 250 MG MAINTENANCE DOSE
  8. ENOXAPARIN [Concomitant]
     Active Substance: ENOXAPARIN
     Indication: PROPHYLAXIS
     Dosage: 0.8 IU/ML

REACTIONS (15)
  - Pulmonary embolism [Unknown]
  - Lymphopenia [Unknown]
  - Tachycardia [Unknown]
  - Tachypnoea [Unknown]
  - Pneumothorax spontaneous [Unknown]
  - PaO2/FiO2 ratio decreased [Unknown]
  - Blood pressure systolic increased [Unknown]
  - Hypoxia [Unknown]
  - C-reactive protein increased [Recovering/Resolving]
  - Acinetobacter sepsis [Unknown]
  - Deep vein thrombosis [Unknown]
  - Pneumonia [Unknown]
  - Maternal exposure during pregnancy [Recovered/Resolved]
  - Death [Fatal]
  - Off label use [Unknown]
